FAERS Safety Report 21023513 (Version 2)
Quarter: 2022Q4

REPORT INFORMATION
  Report Type: Spontaneous
  Country: FR (occurrence: None)
  Receive Date: 20220629
  Receipt Date: 20221228
  Transmission Date: 20230113
  Serious: Yes (Other)
  Sender: FDA-Public Use
  Company Number: 2022A234955

PATIENT
  Age: 29152 Day
  Sex: Female
  Weight: 98 kg

DRUGS (16)
  1. DAPAGLIFLOZIN [Suspect]
     Active Substance: DAPAGLIFLOZIN
     Indication: Type 2 diabetes mellitus
     Route: 048
     Dates: start: 20220118, end: 20220406
  2. DAPAGLIFLOZIN [Suspect]
     Active Substance: DAPAGLIFLOZIN
     Indication: Cardiac failure
     Route: 048
     Dates: start: 20220118, end: 20220406
  3. WARFARIN SODIUM [Concomitant]
     Active Substance: WARFARIN SODIUM
     Dosage: 2.0MG UNKNOWN
     Route: 065
  4. NEBIVOLOL [Concomitant]
     Active Substance: NEBIVOLOL
     Dosage: ONE TABLET IN THE MORNING AND A QUARTER TABLET IN THE EVENING
     Route: 065
  5. ATORVASTATIN [Concomitant]
     Active Substance: ATORVASTATIN
     Dosage: IN THE EVENING
     Route: 065
  6. FUROSEMIDE [Concomitant]
     Active Substance: FUROSEMIDE
     Dosage: QUARTER TABLET MORNING AND MIDDAY
     Route: 065
  7. GLIMEPIRIDE [Concomitant]
     Active Substance: GLIMEPIRIDE
     Dosage: IN THE MORNING
     Route: 065
  8. ESIDREX [Concomitant]
     Active Substance: HYDROCHLOROTHIAZIDE
     Dosage: HALF A TABLET IN THE MORNING.
     Route: 065
  9. POTASSIUM CHLORIDE [Concomitant]
     Active Substance: POTASSIUM CHLORIDE
     Route: 065
  10. ENTRESTO [Concomitant]
     Active Substance: SACUBITRIL\VALSARTAN
     Dosage: 97 MG/ 103 MG,
     Route: 065
  11. DAFALGAN CODEINE [Concomitant]
     Active Substance: ACETAMINOPHEN\CODEINE PHOSPHATE
     Dosage: 2 TABLETS MORNING, MIDDAY AND EVENING
     Route: 065
  12. ZOPICLONE [Concomitant]
     Active Substance: ZOPICLONE
     Dosage: IN THE EVENING
     Route: 065
  13. XALATAN [Concomitant]
     Active Substance: LATANOPROST
     Dosage: 50 MICROGRAM/ML ONE EYE DROP IN THE EVENING
     Route: 065
  14. FLECTOR GEL [Concomitant]
     Dosage: MORNING, MIDDAY AND EVENING
     Route: 065
  15. NERISONE [Concomitant]
     Active Substance: DIFLUCORTOLONE VALERATE
     Dosage: 0.1 PERCENT CREAM MORNING AND EVENING
     Route: 065
  16. VESICARE [Concomitant]
     Active Substance: SOLIFENACIN SUCCINATE
     Route: 065

REACTIONS (2)
  - Hyperkalaemia [Unknown]
  - Amaurosis [Recovered/Resolved]

NARRATIVE: CASE EVENT DATE: 20220214
